FAERS Safety Report 16076754 (Version 1)
Quarter: 2019Q1

REPORT INFORMATION
  Report Type: Spontaneous
  Country: US (occurrence: US)
  Receive Date: 20190315
  Receipt Date: 20190315
  Transmission Date: 20190418
  Serious: No
  Sender: FDA-Public Use
  Company Number: PHEH2019US010593

PATIENT
  Sex: Male

DRUGS (1)
  1. SANDOSTATIN [Suspect]
     Active Substance: OCTREOTIDE ACETATE
     Indication: CARCINOID SYNDROME
     Dosage: UNK
     Route: 065

REACTIONS (7)
  - Pain [Unknown]
  - Depression [Unknown]
  - Arthritis [Unknown]
  - Hypersomnia [Unknown]
  - Movement disorder [Unknown]
  - Feeling abnormal [Unknown]
  - Eye disorder [Unknown]
